FAERS Safety Report 8767581 (Version 1)
Quarter: 2012Q4

REPORT INFORMATION
  Report Type: 
  Country: BR (occurrence: BR)
  Receive Date: 20120904
  Receipt Date: 20120904
  Transmission Date: 20130627
  Serious: Yes (Other)
  Sender: FDA-Public Use
  Company Number: PHHY2012BR075459

PATIENT
  Sex: Female
  Weight: 60 kg

DRUGS (5)
  1. ENALAPRIL MALEATE [Suspect]
     Route: 048
  2. AMLODIPINE [Concomitant]
     Indication: HYPERTENSION
     Dosage: 1 DF at night
     Route: 048
  3. SIMVASTATIN [Concomitant]
     Indication: BLOOD CHOLESTEROL
     Dosage: 20 mg, QD
     Route: 048
  4. DIAMICRON [Concomitant]
     Indication: DIABETES MELLITUS
     Dosage: 30 mg (1 tablet at lunch time)
     Route: 048
  5. AAS [Concomitant]
     Dosage: 1 DF (at lunch time)
     Route: 048

REACTIONS (1)
  - Carotid artery stenosis [Unknown]
